FAERS Safety Report 8933096 (Version 1)
Quarter: 2012Q4

REPORT INFORMATION
  Report Type: 
  Country: NL (occurrence: NL)
  Receive Date: 20121129
  Receipt Date: 20121129
  Transmission Date: 20130627
  Serious: Yes (Death, Other)
  Sender: FDA-Public Use
  Company Number: PHHY2012NL089098

PATIENT
  Sex: Female

DRUGS (2)
  1. SANDOSTATINE LAR [Suspect]
     Dosage: 30 mg, TIW
  2. SANDOSTATINE LAR [Suspect]
     Dosage: 1 DF, UNK

REACTIONS (5)
  - Metastases to liver [Fatal]
  - Endocrine neoplasm [Unknown]
  - Needle issue [Unknown]
  - Injection site pain [Unknown]
  - Drug ineffective [Unknown]
